FAERS Safety Report 4299950-9 (Version None)
Quarter: 2004Q1

REPORT INFORMATION
  Report Type: 
  Country: None (occurrence: None)
  Receive Date: 20040220
  Receipt Date: 20040209
  Transmission Date: 20041129
  Serious: Yes (Other)
  Sender: FDA-Public Use
  Company Number: PHRM2004FR00797

PATIENT
  Sex: Female

DRUGS (2)
  1. TAREG [Suspect]
     Dosage: 40 MG, DAILY
  2. TAREG [Suspect]
     Dosage: 80 MG, DAILY

REACTIONS (4)
  - DRUG EXPOSURE DURING PREGNANCY [None]
  - FOETAL GROWTH RETARDATION [None]
  - OLIGOHYDRAMNIOS [None]
  - ULTRASOUND KIDNEY ABNORMAL [None]
